FAERS Safety Report 18932636 (Version 15)
Quarter: 2025Q1

REPORT INFORMATION
  Report Type: Report from Study
  Country: US (occurrence: US)
  Receive Date: 20210224
  Receipt Date: 20250331
  Transmission Date: 20250409
  Serious: Yes (Hospitalization, Other)
  Sender: TAKEDA
  Company Number: US-TAKEDA-US202015144

PATIENT
  Age: 77 Year
  Sex: Female

DRUGS (6)
  1. HUMAN IMMUNOGLOBULIN G [Suspect]
     Active Substance: HUMAN IMMUNOGLOBULIN G
     Indication: Primary immunodeficiency syndrome
     Dosage: 35 GRAM, MONTHLY
  2. HUMAN IMMUNOGLOBULIN G [Suspect]
     Active Substance: HUMAN IMMUNOGLOBULIN G
  3. HUMAN IMMUNOGLOBULIN G [Suspect]
     Active Substance: HUMAN IMMUNOGLOBULIN G
  4. HUMAN IMMUNOGLOBULIN G [Suspect]
     Active Substance: HUMAN IMMUNOGLOBULIN G
  5. INFLUENZA VIRUS VACCINE [Suspect]
     Active Substance: INFLUENZA VIRUS VACCINE
     Indication: Product used for unknown indication
  6. PREDNISONE [Concomitant]
     Active Substance: PREDNISONE
     Indication: Illness

REACTIONS (26)
  - COVID-19 [Not Recovered/Not Resolved]
  - Polymyalgia rheumatica [Unknown]
  - Diverticulitis [Recovering/Resolving]
  - Gastroenteritis viral [Unknown]
  - Stress [Unknown]
  - Illness [Recovering/Resolving]
  - Weight decreased [Unknown]
  - Arthritis [Unknown]
  - Alopecia [Recovering/Resolving]
  - Bronchitis [Unknown]
  - Fibromyalgia [Unknown]
  - Spondylitis [Recovering/Resolving]
  - Depression [Recovered/Resolved]
  - Nasopharyngitis [Unknown]
  - Sensitivity to weather change [Unknown]
  - Product use issue [Recovered/Resolved]
  - Insurance issue [Recovered/Resolved]
  - Asthma [Unknown]
  - Cardiac murmur [Unknown]
  - Musculoskeletal stiffness [Unknown]
  - Malaise [Unknown]
  - Muscle spasms [Recovering/Resolving]
  - Dyspnoea [Unknown]
  - Cough [Not Recovered/Not Resolved]
  - Pyrexia [Recovering/Resolving]
  - Fatigue [Recovering/Resolving]

NARRATIVE: CASE EVENT DATE: 20240222
